FAERS Safety Report 6611899-2 (Version None)
Quarter: 2010Q1

REPORT INFORMATION
  Report Type: 
  Country: None (occurrence: None)
  Receive Date: 20100225
  Receipt Date: 20100210
  Transmission Date: 20100710
  Serious: Yes (Death)
  Sender: FDA-Public Use
  Company Number: 2010BI005306

PATIENT

DRUGS (8)
  1. ZEVALIN [Suspect]
     Indication: B-CELL LYMPHOMA
  2. ZEVALIN [Suspect]
     Indication: STEM CELL TRANSPLANT
  3. RITUXIMAB (CON.) [Concomitant]
  4. TACROLIMUS (CON.) [Concomitant]
  5. FLUDARABINE (CON.) [Concomitant]
  6. MELPHALAN (CON.) [Concomitant]
  7. SIROLIMUS (CON.) [Concomitant]
  8. PREV MEDS = UNKNOWN [Concomitant]

REACTIONS (2)
  - PNEUMONIA VIRAL [None]
  - PULMONARY ALVEOLAR HAEMORRHAGE [None]
